FAERS Safety Report 16126358 (Version 5)
Quarter: 2022Q1

REPORT INFORMATION
  Report Type: Report from Study
  Country: CN (occurrence: None)
  Receive Date: 20190328
  Receipt Date: 20220106
  Transmission Date: 20220424
  Serious: Yes (Hospitalization)
  Sender: FDA-Public Use
  Company Number: CN-ROCHE-2271925

PATIENT
  Age: 29 Year
  Sex: Female
  Weight: 36 kg

DRUGS (10)
  1. TOCILIZUMAB [Suspect]
     Active Substance: TOCILIZUMAB
     Indication: Adenocarcinoma gastric
     Dosage: ON 14/FEB/2019, PATIENT RECEIVED MOST RECENT DOSE OF BLINDED TOCILIZUMAB.?ON 01/FEB/2019, PATIENT RE
     Route: 065
     Dates: start: 20180929
  2. PLACEBO [Suspect]
     Active Substance: UNSPECIFIED INGREDIENT
     Indication: Adenocarcinoma gastric
     Dosage: ON 15/FEB/2019, PATIENT RECEIVED MOST RECENT DOSE OF BLINDED METHOTREXATE?ON 01/FEB/2019, PATIENT RE
     Route: 048
     Dates: start: 20181005
  3. PREDNISONE [Concomitant]
     Active Substance: PREDNISONE
     Indication: Rheumatoid arthritis
     Route: 048
     Dates: start: 20180510
  4. MOBIC [Concomitant]
     Active Substance: MELOXICAM
     Indication: Rheumatoid arthritis
     Route: 048
     Dates: start: 20180510, end: 20190923
  5. CALCIUM CARBONATE\CHOLECALCIFEROL [Concomitant]
     Active Substance: CALCIUM CARBONATE\CHOLECALCIFEROL
     Indication: Prophylaxis
     Route: 065
     Dates: start: 20180510
  6. CALCITRIOL [Concomitant]
     Active Substance: CALCITRIOL
     Indication: Prophylaxis
     Dates: start: 20180510
  7. FOLIC ACID [Concomitant]
     Active Substance: FOLIC ACID
     Indication: Prophylaxis
     Dates: start: 20180510
  8. FOLIC ACID [Concomitant]
     Active Substance: FOLIC ACID
     Dates: start: 20180621
  9. TOCILIZUMAB [Concomitant]
     Active Substance: TOCILIZUMAB
     Route: 058
     Dates: start: 20190328
  10. METHOTREXATE [Concomitant]
     Active Substance: METHOTREXATE
     Dosage: DOSE CONCENTRATION 2.5 MG
     Route: 048
     Dates: start: 20190329

REACTIONS (1)
  - Asthma [Recovered/Resolved]

NARRATIVE: CASE EVENT DATE: 20190201
